FAERS Safety Report 11687729 (Version 2)
Quarter: 2015Q4

REPORT INFORMATION
  Report Type: Spontaneous
  Country: US (occurrence: US)
  Receive Date: 20151030
  Receipt Date: 20151116
  Transmission Date: 20160304
  Serious: Yes (Hospitalization, Other)
  Sender: FDA-Public Use
  Company Number: US-JNJFOC-20151021422

PATIENT
  Age: 37 Year
  Sex: Female
  Weight: 122.45 kg

DRUGS (7)
  1. ADEMPAS [Suspect]
     Active Substance: RIOCIGUAT
     Indication: PULMONARY HYPERTENSION
     Route: 048
  2. ADEMPAS [Suspect]
     Active Substance: RIOCIGUAT
     Indication: PULMONARY HYPERTENSION
     Route: 048
     Dates: start: 20150304
  3. XARELTO [Suspect]
     Active Substance: RIVAROXABAN
     Indication: PRODUCT USED FOR UNKNOWN INDICATION
     Route: 048
  4. ADEMPAS [Suspect]
     Active Substance: RIOCIGUAT
     Indication: PULMONARY HYPERTENSION
     Route: 048
  5. ADEMPAS [Suspect]
     Active Substance: RIOCIGUAT
     Indication: PULMONARY HYPERTENSION
     Route: 048
  6. ADEMPAS [Suspect]
     Active Substance: RIOCIGUAT
     Indication: PULMONARY HYPERTENSION
     Route: 048
     Dates: start: 20150302
  7. ADEMPAS [Suspect]
     Active Substance: RIOCIGUAT
     Indication: PULMONARY HYPERTENSION
     Route: 048

REACTIONS (20)
  - Cardiac failure congestive [Unknown]
  - Loss of consciousness [Unknown]
  - Oedema peripheral [Unknown]
  - Syncope [Unknown]
  - Seizure like phenomena [Unknown]
  - Migraine [Unknown]
  - Photophobia [Unknown]
  - Fluid retention [Unknown]
  - Fall [Unknown]
  - Asthenia [Unknown]
  - Drug dose omission [Unknown]
  - Metrorrhagia [Unknown]
  - Gastroenteritis viral [Unknown]
  - Contusion [Unknown]
  - Urinary tract infection [Unknown]
  - Loss of consciousness [Unknown]
  - Eye pain [Unknown]
  - Headache [Unknown]
  - Dyspnoea [Unknown]
  - Cough [Unknown]

NARRATIVE: CASE EVENT DATE: 201505
